FAERS Safety Report 12404905 (Version 3)
Quarter: 2016Q3

REPORT INFORMATION
  Report Type: Spontaneous
  Country: US (occurrence: US)
  Receive Date: 20160525
  Receipt Date: 20160817
  Transmission Date: 20161109
  Serious: No
  Sender: FDA-Public Use
  Company Number: US-PFIZER INC-2016270055

PATIENT
  Age: 70 Year
  Sex: Female

DRUGS (1)
  1. CELECOXIB. [Suspect]
     Active Substance: CELECOXIB
     Dosage: 200 (2 X DAILY)

REACTIONS (6)
  - Drug ineffective [Unknown]
  - Tinnitus [Unknown]
  - Dry eye [Unknown]
  - Pain [Not Recovered/Not Resolved]
  - Gait disturbance [Recovered/Resolved]
  - Malaise [Unknown]
